FAERS Safety Report 8878764 (Version 2)
Quarter: 2012Q4

REPORT INFORMATION
  Report Type: 
  Country: MX (occurrence: MX)
  Receive Date: 20121026
  Receipt Date: 20121123
  Transmission Date: 20130627
  Serious: Yes (Death, Hospitalization, Other)
  Sender: FDA-Public Use
  Company Number: PHHY2012MX096162

PATIENT
  Age: 77 Year
  Sex: Male

DRUGS (2)
  1. EXELON PATCH [Suspect]
     Indication: DEMENTIA ALZHEIMER^S TYPE
     Dosage: 9.5 mg\24hrs
     Route: 062
     Dates: start: 201210
  2. EXELON PATCH [Suspect]
     Indication: PARKINSON^S DISEASE

REACTIONS (4)
  - Myocardial infarction [Fatal]
  - Oxygen saturation decreased [Not Recovered/Not Resolved]
  - Dehydration [Not Recovered/Not Resolved]
  - Cardiac disorder [Unknown]
